FAERS Safety Report 13953026 (Version 1)
Quarter: 2017Q3

REPORT INFORMATION
  Report Type: Spontaneous
  Country: US (occurrence: US)
  Receive Date: 20170911
  Receipt Date: 20170911
  Transmission Date: 20171128
  Serious: No
  Sender: FDA-Public Use
  Company Number: US-ZYDUS-015647

PATIENT
  Age: 79 Year
  Sex: Female

DRUGS (3)
  1. ACICLOVIR [Suspect]
     Active Substance: ACYCLOVIR
     Indication: OPHTHALMIC HERPES ZOSTER
     Dates: end: 20170617
  2. PREDNISOLONE. [Concomitant]
     Active Substance: PREDNISOLONE
     Indication: OPHTHALMIC HERPES ZOSTER
  3. TRIFLURIDINE. [Concomitant]
     Active Substance: TRIFLURIDINE
     Indication: OPHTHALMIC HERPES ZOSTER

REACTIONS (5)
  - Pain [Recovering/Resolving]
  - Back pain [Recovering/Resolving]
  - Fatigue [Recovering/Resolving]
  - Peripheral swelling [Recovering/Resolving]
  - Dysuria [Recovering/Resolving]

NARRATIVE: CASE EVENT DATE: 201706
